FAERS Safety Report 6875745-4 (Version None)
Quarter: 2010Q3

REPORT INFORMATION
  Report Type: 
  Country: None (occurrence: None)
  Receive Date: 20100727
  Receipt Date: 20100714
  Transmission Date: 20110219
  Serious: Yes (Other)
  Sender: FDA-Public Use
  Company Number: PHHY2010IN34936

PATIENT
  Age: 36 Year
  Sex: Female

DRUGS (3)
  1. AFINITOR [Suspect]
     Dosage: 10 MG
  2. AFINITOR [Suspect]
     Dosage: 5 MG, QD
  3. AFINITOR [Suspect]
     Dosage: 5 MG, BID

REACTIONS (5)
  - EAR PAIN [None]
  - EPISTAXIS [None]
  - FATIGUE [None]
  - MOUTH ULCERATION [None]
  - PYREXIA [None]
